FAERS Safety Report 18843393 (Version 1)
Quarter: 2021Q1

REPORT INFORMATION
  Report Type: Report from Study
  Country: US (occurrence: US)
  Receive Date: 20210203
  Receipt Date: 20210203
  Transmission Date: 20210419
  Serious: No
  Sender: FDA-Public Use
  Company Number: US-EXELIXIS-CABO-20031732

PATIENT
  Sex: Female

DRUGS (8)
  1. LASIX [Concomitant]
     Active Substance: FUROSEMIDE
  2. SIMVASTATIN. [Concomitant]
     Active Substance: SIMVASTATIN
  3. FLUOROURACIL. [Concomitant]
     Active Substance: FLUOROURACIL
  4. ROBAXIN [Concomitant]
     Active Substance: METHOCARBAMOL
  5. METOPROLOL. [Concomitant]
     Active Substance: METOPROLOL
  6. ARANESP [Concomitant]
     Active Substance: DARBEPOETIN ALFA
  7. ROPINIROLE. [Concomitant]
     Active Substance: ROPINIROLE
  8. CABOMETYX [Suspect]
     Active Substance: CABOZANTINIB S-MALATE
     Indication: RENAL CANCER
     Dosage: 60 MG, QD
     Route: 048

REACTIONS (3)
  - Palmar erythema [Not Recovered/Not Resolved]
  - Pain in extremity [Not Recovered/Not Resolved]
  - Diarrhoea [Not Recovered/Not Resolved]
